FAERS Safety Report 23350571 (Version 1)
Quarter: 2023Q4

REPORT INFORMATION
  Report Type: Report from Study
  Country: BR (occurrence: BR)
  Receive Date: 20231229
  Receipt Date: 20231229
  Transmission Date: 20240110
  Serious: Yes (Other)
  Sender: FDA-Public Use
  Company Number: BR-MYLANLABS-2023M1138273

PATIENT
  Sex: Female
  Weight: 92 kg

DRUGS (2)
  1. XALATAN [Suspect]
     Active Substance: LATANOPROST
     Indication: Glaucoma
     Dosage: 1 GTT DROPS, QD
     Route: 047
     Dates: start: 2019
  2. XALATAN [Suspect]
     Active Substance: LATANOPROST
     Dosage: 2 DROP, QD
     Route: 047
     Dates: start: 2019

REACTIONS (6)
  - Intraocular pressure test abnormal [Recovering/Resolving]
  - Anxiety [Not Recovered/Not Resolved]
  - Eye irritation [Recovering/Resolving]
  - Eye pain [Recovering/Resolving]
  - Ocular hyperaemia [Recovering/Resolving]
  - Incorrect dose administered [Not Recovered/Not Resolved]
